FAERS Safety Report 5262675-7 (Version None)
Quarter: 2007Q1

REPORT INFORMATION
  Report Type: 
  Country: None (occurrence: None)
  Receive Date: 20070312
  Receipt Date: 20070307
  Transmission Date: 20070707
  Serious: Yes (Hospitalization)
  Sender: FDA-Public Use
  Company Number: US-MERCK-0703USA01176

PATIENT
  Age: 76 Year
  Sex: Female

DRUGS (2)
  1. FOSAMAX [Suspect]
     Indication: OSTEOPOROSIS
     Route: 048
     Dates: start: 20000101
  2. [THERAPY UNSPECIFIED] [Concomitant]
     Route: 065

REACTIONS (4)
  - FALL [None]
  - INTERVERTEBRAL DISC PROTRUSION [None]
  - NERVE COMPRESSION [None]
  - OSTEOPOROSIS [None]
